FAERS Safety Report 7816016-9 (Version None)
Quarter: 2011Q4

REPORT INFORMATION
  Report Type: 
  Country: None (occurrence: None)
  Receive Date: 20111014
  Receipt Date: 20110926
  Transmission Date: 20120403
  Serious: Yes (Hospitalization, Congenital Anomaly)
  Sender: FDA-Public Use
  Company Number: TH-GILEAD-2011-0039331

PATIENT

DRUGS (5)
  1. LOPINAVIR [Concomitant]
     Indication: HIV INFECTION
  2. ZIDOVUDINE [Concomitant]
     Indication: HIV INFECTION
  3. LAMIVUDINE [Concomitant]
     Indication: HIV INFECTION
  4. EMTRICITABINE/TENOFOVIR DISOPROXIL FUMARATE [Suspect]
     Indication: HIV INFECTION
     Dates: start: 20110420
  5. EFAVIRENZ [Concomitant]
     Indication: HIV INFECTION

REACTIONS (1)
  - ABDOMINAL MASS [None]
